FAERS Safety Report 21057405 (Version 1)
Quarter: 2022Q3

REPORT INFORMATION
  Report Type: Report from Study
  Country: JP (occurrence: JP)
  Receive Date: 20220708
  Receipt Date: 20220708
  Transmission Date: 20221027
  Serious: Yes (Hospitalization)
  Sender: FDA-Public Use
  Company Number: JP-ASTELLAS-2020US007011

PATIENT
  Age: 71 Year
  Sex: Male

DRUGS (25)
  1. BENDAMUSTINE HYDROCHLORIDE [Suspect]
     Active Substance: BENDAMUSTINE HYDROCHLORIDE
     Indication: Diffuse large B-cell lymphoma
     Dosage: 184 MG, CYCLIC (ONCE IN 1.5 WEEK)
     Route: 042
     Dates: start: 20190613
  2. BENDAMUSTINE HYDROCHLORIDE [Suspect]
     Active Substance: BENDAMUSTINE HYDROCHLORIDE
     Dosage: 184 MG, CYCLIC (ONCE IN 1.5 WEEK)
     Route: 042
     Dates: start: 20190820
  3. BENDAMUSTINE HYDROCHLORIDE [Suspect]
     Active Substance: BENDAMUSTINE HYDROCHLORIDE
     Dosage: 184 MG, CYCLIC (ONCE IN 1.5 WEEK)
     Route: 042
     Dates: start: 20190821
  4. BENDAMUSTINE HYDROCHLORIDE [Suspect]
     Active Substance: BENDAMUSTINE HYDROCHLORIDE
     Dosage: 176 MG, CYCLIC (ONCE IN 1.5 WEEK)
     Route: 042
     Dates: start: 20190910
  5. BENDAMUSTINE HYDROCHLORIDE [Suspect]
     Active Substance: BENDAMUSTINE HYDROCHLORIDE
     Dosage: 176 MG, CYCLIC (ONCE IN 1.5 WEEK)
     Route: 042
     Dates: start: 20190911
  6. RITUXIMAB [Suspect]
     Active Substance: RITUXIMAB
     Indication: Diffuse large B-cell lymphoma
     Dosage: 767 MG, CYCLIC (ONCE IN 3 WEEKS)
     Route: 041
     Dates: start: 20190612
  7. RITUXIMAB [Suspect]
     Active Substance: RITUXIMAB
     Dosage: 767 MG, CYCLIC (ONCE IN 3 WEEKS)
     Route: 041
     Dates: start: 20190820
  8. RITUXIMAB [Suspect]
     Active Substance: RITUXIMAB
     Dosage: 733 MG, CYCLIC (ONCE IN 3 WEEKS)
     Route: 041
     Dates: start: 20190910
  9. POLATUZUMAB VEDOTIN [Suspect]
     Active Substance: POLATUZUMAB VEDOTIN
     Indication: Diffuse large B-cell lymphoma
     Dosage: 153 MG, CYCLIC (ONCE IN 3 WEEKS)
     Route: 042
     Dates: start: 20190613
  10. POLATUZUMAB VEDOTIN [Suspect]
     Active Substance: POLATUZUMAB VEDOTIN
     Dosage: 153 MG, CYCLIC (ONCE IN 3 WEEKS)
     Route: 042
     Dates: start: 20190703
  11. POLATUZUMAB VEDOTIN [Suspect]
     Active Substance: POLATUZUMAB VEDOTIN
     Dosage: 153 MG, CYCLIC (ONCE IN 3 WEEKS)
     Route: 042
     Dates: start: 20190724
  12. POLATUZUMAB VEDOTIN [Suspect]
     Active Substance: POLATUZUMAB VEDOTIN
     Dosage: 153 MG, CYCLIC (ONCE IN 3 WEEKS)
     Route: 042
     Dates: start: 20190820
  13. POLATUZUMAB VEDOTIN [Suspect]
     Active Substance: POLATUZUMAB VEDOTIN
     Dosage: 153 MG, CYCLIC (ONCE IN 3 WEEKS)
     Route: 042
     Dates: start: 20190910
  14. LANSOPRAZOLE [Concomitant]
     Active Substance: LANSOPRAZOLE
     Indication: Gastrooesophageal reflux disease
     Dosage: 15 MG, ONCE DAILY (BEGINNING OF DOSAGE DAY: TRIAL PREINITIATION)
     Route: 048
  15. ROSUVASTATIN [Concomitant]
     Active Substance: ROSUVASTATIN
     Indication: Dyslipidaemia
     Dosage: 2.5 MG, ONCE DAILY (BEGINNING OF DOSAGE DAY: TRIAL PREINITIATION)
     Route: 048
  16. EDOXABAN TOSYLATE [Concomitant]
     Active Substance: EDOXABAN TOSYLATE
     Indication: Pulmonary artery thrombosis
     Dosage: 60 MG, ONCE DAILY (BEGINNING OF DOSAGE DAY: TRIAL PREINITIATION)
     Route: 048
  17. CILOSTAZOL [Concomitant]
     Active Substance: CILOSTAZOL
     Indication: Arterial occlusive disease
     Dosage: 100 MG, EVERY 12 HOURS (BEGINNING OF DOSAGE DAY: TRIAL PREINITIATION)
     Route: 048
  18. FEXOFENADINE HYDROCHLORIDE [Concomitant]
     Active Substance: FEXOFENADINE HYDROCHLORIDE
     Indication: Dry skin
     Dosage: 60 MG, EVERY 12 HOURS (BEGINNING OF DOSAGE DAY: TRIAL PREINITIATION)
     Route: 048
  19. SENNOSIDES A AND B [Concomitant]
     Active Substance: SENNOSIDES A AND B
     Indication: Constipation
     Dosage: 24 MG, ONCE DAILY (BEGINNING OF DOSAGE DAY: TRIAL PREINITIATION)
     Route: 048
  20. METHYLCOBALAMIN [Concomitant]
     Active Substance: METHYLCOBALAMIN
     Indication: Neuropathy peripheral
     Dosage: 500 UG, EVERY 8 HOURS (BEGINNING OF DOSAGE DAY: TRIAL PREINITIATION)
     Route: 048
  21. SULFAMETHOXAZOLE\TRIMETHOPRIM [Concomitant]
     Active Substance: SULFAMETHOXAZOLE\TRIMETHOPRIM
     Indication: Infection prophylaxis
     Dosage: 1 DF, ONCE DAILY (BEGINNING OF DOSAGE DAY: TRIAL PREINITIATION USAGE: THE MOON, WATER, AND MONEY)
     Route: 048
  22. LYRICA [Concomitant]
     Active Substance: PREGABALIN
     Indication: Neuropathy peripheral
     Dosage: 25 MG, EVERY 12 HOURS (BEGINNING OF DOSAGE DAY: TRIAL PREINITIATION)
     Route: 048
  23. CALONAL [Concomitant]
     Active Substance: ACETAMINOPHEN
     Indication: Spinal osteoarthritis
     Dosage: 400 MG, EVERY 6 HOURS (BEGINNING OF DOSAGE DAY: TRIAL PREINITIATION)
     Route: 048
  24. FEBUXOSTAT [Concomitant]
     Active Substance: FEBUXOSTAT
     Indication: Hyperuricaemia
     Dosage: 20 MG, ONCE DAILY (BEGINNING OF DOSAGE DAY: TRIAL PREINITIATION)
     Route: 048
  25. VALACYCLOVIR HYDROCHLORIDE [Concomitant]
     Active Substance: VALACYCLOVIR HYDROCHLORIDE
     Indication: Infection prophylaxis
     Dosage: 500 MG, ONCE DAILY (BEGINNING OF DOSAGE DAY: TRIAL PREINITIATION USAGE: THE MOON, WATER, AND MONEY)
     Route: 048

REACTIONS (1)
  - Decreased appetite [Recovered/Resolved]

NARRATIVE: CASE EVENT DATE: 20190707
